FAERS Safety Report 16864612 (Version 1)
Quarter: 2019Q3

REPORT INFORMATION
  Report Type: Spontaneous
  Country: US (occurrence: US)
  Receive Date: 20190928
  Receipt Date: 20190928
  Transmission Date: 20191005
  Serious: No
  Sender: FDA-Public Use
  Company Number: US-TEVA-2019-US-1115317

PATIENT
  Sex: Female

DRUGS (2)
  1. BUPRENORPHINE TRANSDERMAL PATCH [Suspect]
     Active Substance: BUPRENORPHINE
     Indication: ARTHRALGIA
     Dosage: FORM STRENGTH: 5 MCG/HR
     Route: 062
     Dates: start: 20190118, end: 20190602
  2. BUPRENORPHINE TRANSDERMAL PATCH [Suspect]
     Active Substance: BUPRENORPHINE
     Dosage: FORM STRENGTH: 10 MCG/HR
     Route: 062
     Dates: start: 20190602

REACTIONS (3)
  - Drug ineffective [Unknown]
  - Product adhesion issue [Unknown]
  - Application site irritation [Unknown]
